FAERS Safety Report 11900935 (Version 1)
Quarter: 2016Q1

REPORT INFORMATION
  Report Type: Spontaneous
  Country: US (occurrence: US)
  Receive Date: 20160108
  Receipt Date: 20160108
  Transmission Date: 20160526
  Serious: No
  Sender: FDA-Public Use
  Company Number: US-009507513-1601USA002404

PATIENT
  Age: 20 Year
  Sex: Female
  Weight: 61.22 kg

DRUGS (1)
  1. NEXPLANON [Suspect]
     Active Substance: ETONOGESTREL
     Dosage: 1 ROD  / EVERY THREE YEARS
     Route: 059
     Dates: start: 201411

REACTIONS (2)
  - Breast enlargement [Unknown]
  - Nipple disorder [Unknown]

NARRATIVE: CASE EVENT DATE: 2015
